FAERS Safety Report 4512757-X (Version None)
Quarter: 2004Q4

REPORT INFORMATION
  Report Type: 
  Country: None (occurrence: None)
  Receive Date: 20040928
  Receipt Date: 20040601
  Transmission Date: 20050328
  Serious: No
  Sender: FDA-Public Use
  Company Number: 04P-163-0262470-00

PATIENT
  Age: 59 Year
  Sex: Female
  Weight: 90.7194 kg

DRUGS (12)
  1. HUMIRA [Suspect]
     Indication: RHEUMATOID ARTHRITIS
     Dosage: 40 MG, 1 IN 2 WK, SUBCUTANEOUS
     Route: 058
     Dates: start: 20040521
  2. OMEPRAZOLE [Concomitant]
  3. NABUMETONE [Concomitant]
  4. OXYCODONE HCL [Concomitant]
  5. PREDNISONE [Concomitant]
  6. ESTRACE [Concomitant]
  7. METOPROLOL SUCCINATE [Concomitant]
  8. ALENDRONATE SODIUM [Concomitant]
  9. ZOCOR [Concomitant]
  10. FOLIC ACID [Concomitant]
  11. MULTI-VITAMINS [Concomitant]
  12. CALCIUM [Concomitant]

REACTIONS (1)
  - INJECTION SITE ERYTHEMA [None]
